FAERS Safety Report 7374063-8 (Version None)
Quarter: 2011Q1

REPORT INFORMATION
  Report Type: 
  Country: None (occurrence: None)
  Receive Date: 20110325
  Receipt Date: 20110317
  Transmission Date: 20110831
  Serious: Yes (Other)
  Sender: FDA-Public Use
  Company Number: US-ASTELLAS-2011US001108

PATIENT
  Age: 60 Year
  Sex: Female
  Weight: 204 kg

DRUGS (1)
  1. VIBATIV [Suspect]
     Indication: CELLULITIS
     Dosage: 1500 MG, UID/QD
     Route: 042

REACTIONS (3)
  - WHITE BLOOD CELL COUNT DECREASED [None]
  - PLATELET COUNT DECREASED [None]
  - NEUTROPHIL COUNT DECREASED [None]
